FAERS Safety Report 23905641 (Version 1)
Quarter: 2024Q2

REPORT INFORMATION
  Report Type: Spontaneous
  Country: CN (occurrence: CN)
  Receive Date: 20240527
  Receipt Date: 20240527
  Transmission Date: 20240716
  Serious: Yes (Other)
  Sender: FDA-Public Use
  Company Number: CN-PFIZER INC-PV202400068590

PATIENT
  Age: 17 Year
  Sex: Male
  Weight: 48 kg

DRUGS (3)
  1. METHOTREXATE SODIUM [Suspect]
     Active Substance: METHOTREXATE SODIUM
     Indication: Chemotherapy
     Dosage: 2 G, 1X/DAY
     Route: 042
     Dates: start: 20240509, end: 20240509
  2. METHOTREXATE SODIUM [Suspect]
     Active Substance: METHOTREXATE SODIUM
     Indication: Neoplasm
     Dosage: 4 G, 1X/DAY (INFUSION PUMP FOR 23.5 HRS)
     Route: 042
     Dates: start: 20240509, end: 20240509
  3. PEGASPARGASE [Concomitant]
     Active Substance: PEGASPARGASE
     Indication: Chemotherapy

REACTIONS (6)
  - Mouth injury [Not Recovered/Not Resolved]
  - Abdominal pain [Recovering/Resolving]
  - Dysphagia [Unknown]
  - Dermatitis [Recovering/Resolving]
  - Folliculitis [Unknown]
  - Drooling [Not Recovered/Not Resolved]

NARRATIVE: CASE EVENT DATE: 20240512
